FAERS Safety Report 7030186-4 (Version None)
Quarter: 2010Q4

REPORT INFORMATION
  Report Type: 
  Country: None (occurrence: None)
  Receive Date: 20101006
  Receipt Date: 20101004
  Transmission Date: 20110411
  Serious: Yes (Death)
  Sender: FDA-Public Use
  Company Number: US-BRISTOL-MYERS SQUIBB COMPANY-15317308

PATIENT
  Age: 71 Year
  Sex: Male

DRUGS (2)
  1. SINEMET [Suspect]
  2. COUMADIN [Suspect]
     Indication: DEEP VEIN THROMBOSIS

REACTIONS (1)
  - GASTROINTESTINAL HAEMORRHAGE [None]
